FAERS Safety Report 11665775 (Version 3)
Quarter: 2015Q4

REPORT INFORMATION
  Report Type: Spontaneous
  Country: JP (occurrence: JP)
  Receive Date: 20151027
  Receipt Date: 20151119
  Transmission Date: 20160304
  Serious: Yes (Hospitalization, Other)
  Sender: FDA-Public Use
  Company Number: JP-PFIZER INC-2015356236

PATIENT
  Age: 28 Year
  Sex: Female

DRUGS (5)
  1. PALIPERIDONE [Concomitant]
     Active Substance: PALIPERIDONE
     Dosage: 9 MG, DAILY
  2. ARIPIPRAZOLE. [Concomitant]
     Active Substance: ARIPIPRAZOLE
     Dosage: 18 MG, DAILY
  3. RAMELTEON [Concomitant]
     Active Substance: RAMELTEON
     Dosage: 8 MG, DAILY
  4. CHAMPIX [Suspect]
     Active Substance: VARENICLINE TARTRATE
     Indication: SMOKING CESSATION THERAPY
     Dosage: UNK
     Route: 048
  5. NITRAZEPAM [Concomitant]
     Active Substance: NITRAZEPAM
     Dosage: 10 MG, DAILY

REACTIONS (12)
  - Aggression [Recovered/Resolved]
  - Frustration [Recovered/Resolved]
  - Hallucination [Recovered/Resolved]
  - Delusion [Recovered/Resolved]
  - Impulsive behaviour [Recovered/Resolved]
  - Condition aggravated [Recovered/Resolved]
  - Anxiety [Recovered/Resolved]
  - Irritability [Recovered/Resolved]
  - Hallucination, auditory [Recovered/Resolved]
  - Schizophrenia [Recovered/Resolved]
  - Tobacco withdrawal symptoms [Recovered/Resolved]
  - Affect lability [Recovered/Resolved]
